FAERS Safety Report 4291531-6 (Version None)
Quarter: 2004Q1

REPORT INFORMATION
  Report Type: 
  Country: None (occurrence: None)
  Receive Date: 20040210
  Receipt Date: 20040210
  Transmission Date: 20041129
  Serious: Yes (Hospitalization)
  Sender: FDA-Public Use
  Company Number: None

PATIENT
  Age: 51 Year
  Sex: Male
  Weight: 90 kg

DRUGS (1)
  1. DEPAKOTE ER [Suspect]
     Indication: BIPOLAR I DISORDER
     Dosage: 2 G PO QHS
     Route: 048
     Dates: start: 20030908, end: 20030929

REACTIONS (1)
  - PANCREATITIS ACUTE [None]
